FAERS Safety Report 7399566-1 (Version None)
Quarter: 2011Q1

REPORT INFORMATION
  Report Type: 
  Country: None (occurrence: None)
  Receive Date: 20110330
  Receipt Date: 20110321
  Transmission Date: 20110831
  Serious: Yes (Hospitalization)
  Sender: FDA-Public Use
  Company Number: DSA_45238_2011

PATIENT
  Sex: Female

DRUGS (1)
  1. WELLBUTRIN [Suspect]
     Indication: PRODUCT USED FOR UNKNOWN INDICATION
     Dosage: (150 MG OD ORAL)
     Route: 048

REACTIONS (10)
  - EYELID OEDEMA [None]
  - DRUG INEFFECTIVE [None]
  - SOMNOLENCE [None]
  - REFUSAL OF TREATMENT BY PATIENT [None]
  - URTICARIA [None]
  - PRURITUS [None]
  - TREATMENT NONCOMPLIANCE [None]
  - LIP OEDEMA [None]
  - OEDEMA PERIPHERAL [None]
  - OEDEMA [None]
